FAERS Safety Report 18496705 (Version 1)
Quarter: 2020Q4

REPORT INFORMATION
  Report Type: Spontaneous
  Country: FR (occurrence: FR)
  Receive Date: 20201112
  Receipt Date: 20201112
  Transmission Date: 20210114
  Serious: Yes (Hospitalization)
  Sender: FDA-Public Use
  Company Number: FR-PFIZER INC-2020441106

PATIENT
  Age: 73 Year
  Sex: Female
  Weight: 74 kg

DRUGS (7)
  1. EMEND [Suspect]
     Active Substance: APREPITANT
     Indication: CHEMOTHERAPY SIDE EFFECT PROPHYLAXIS
     Dosage: 125 MG, CYCLIC
     Route: 048
     Dates: start: 20201016, end: 20201018
  2. INDAPAMIDE. [Suspect]
     Active Substance: INDAPAMIDE
     Indication: HYPERTENSION
     Dosage: 2.5 MG, 1X/DAY
     Route: 048
     Dates: end: 20201018
  3. ENDOXAN [CYCLOPHOSPHAMIDE] [Suspect]
     Active Substance: CYCLOPHOSPHAMIDE
     Indication: BREAST CANCER
     Dosage: 700 MG, CYCLIC
     Route: 042
     Dates: start: 20201016, end: 20201016
  4. EPIRUBICIN HCL [Suspect]
     Active Substance: EPIRUBICIN HYDROCHLORIDE
     Indication: BREAST CANCER
     Dosage: 160 MG, CYCLIC
     Route: 042
     Dates: start: 20201016, end: 20201016
  5. PELMEG [Suspect]
     Active Substance: PEGFILGRASTIM
     Indication: CHEMOTHERAPY SIDE EFFECT PROPHYLAXIS
     Dosage: UNK
     Dates: start: 20201016, end: 20201016
  6. SOLU-MEDROL [Suspect]
     Active Substance: METHYLPREDNISOLONE SODIUM SUCCINATE
     Indication: CHEMOTHERAPY SIDE EFFECT PROPHYLAXIS
     Dosage: 80 MG, CYCLIC
     Route: 042
     Dates: start: 20201016, end: 20201016
  7. ZOPHREN [ONDANSETRON HYDROCHLORIDE] [Suspect]
     Active Substance: ONDANSETRON
     Indication: CHEMOTHERAPY SIDE EFFECT PROPHYLAXIS
     Dosage: 8 MG, CYCLIC
     Route: 042
     Dates: start: 20201016, end: 20201016

REACTIONS (1)
  - Hyponatraemia [Recovering/Resolving]

NARRATIVE: CASE EVENT DATE: 20201017
